FAERS Safety Report 13740705 (Version 2)
Quarter: 2018Q1

REPORT INFORMATION
  Report Type: Spontaneous
  Country: US (occurrence: US)
  Receive Date: 20170711
  Receipt Date: 20180309
  Transmission Date: 20180508
  Serious: Yes (Other)
  Sender: FDA-Public Use
  Company Number: US-ENDO PHARMACEUTICALS INC-2017-003730

PATIENT
  Age: 84 Year
  Sex: Female

DRUGS (1)
  1. PREDNISONE TABLETS [Suspect]
     Active Substance: PREDNISONE
     Indication: POSTPARTUM HYPOPITUITARISM
     Dosage: UNK UNK, UNKNOWN, FOR YEARS
     Route: 065

REACTIONS (2)
  - Eye operation [Unknown]
  - Off label use [Unknown]
